FAERS Safety Report 25122644 (Version 1)
Quarter: 2025Q1

REPORT INFORMATION
  Report Type: Report from Study
  Country: CL (occurrence: CL)
  Receive Date: 20250326
  Receipt Date: 20250326
  Transmission Date: 20250409
  Serious: Yes (Other)
  Sender: ROCHE
  Company Number: CL-ROCHE-10000235814

PATIENT
  Age: 45 Year
  Sex: Female

DRUGS (1)
  1. HERCEPTIN [Suspect]
     Active Substance: TRASTUZUMAB
     Indication: HER2 positive breast cancer
     Dosage: TRASTUZUMAB
     Route: 058
     Dates: start: 20230925

REACTIONS (2)
  - Erythema [Unknown]
  - Breast cancer [Unknown]

NARRATIVE: CASE EVENT DATE: 20241001
